FAERS Safety Report 18706244 (Version 1)
Quarter: 2021Q1

REPORT INFORMATION
  Report Type: Spontaneous
  Country: US (occurrence: US)
  Receive Date: 20210106
  Receipt Date: 20210106
  Transmission Date: 20210419
  Serious: No
  Sender: FDA-Public Use
  Company Number: US-ASTRAZENECA-2020SF72451

PATIENT
  Sex: Male

DRUGS (1)
  1. SYMBICORT [Suspect]
     Active Substance: BUDESONIDE\FORMOTEROL FUMARATE DIHYDRATE
     Dosage: SYMBICORT TWO PUFFS
     Route: 055

REACTIONS (4)
  - Product dose omission issue [Unknown]
  - Oropharyngeal discomfort [Unknown]
  - Memory impairment [Unknown]
  - Dysphonia [Unknown]
